FAERS Safety Report 20559814 (Version 1)
Quarter: 2022Q1

REPORT INFORMATION
  Report Type: Spontaneous
  Country: US (occurrence: None)
  Receive Date: 20220305
  Receipt Date: 20220305
  Transmission Date: 20220424
  Serious: No
  Sender: FDA-Public Use
  Company Number: None

PATIENT
  Age: 76 Year
  Sex: Male
  Weight: 83.3 kg

DRUGS (3)
  1. LENALIDOMIDE [Suspect]
     Active Substance: LENALIDOMIDE
     Dates: end: 20200509
  2. DEXAMETHASONE [Suspect]
     Active Substance: DEXAMETHASONE
     Dates: end: 20190521
  3. VELCADE [Suspect]
     Active Substance: BORTEZOMIB
     Dates: end: 20190520

REACTIONS (2)
  - Squamous cell carcinoma [None]
  - Basal cell carcinoma [None]

NARRATIVE: CASE EVENT DATE: 20211014
